FAERS Safety Report 10369393 (Version 1)
Quarter: 2014Q3

REPORT INFORMATION
  Report Type: Spontaneous
  Country: US (occurrence: US)
  Receive Date: 20140807
  Receipt Date: 20140807
  Transmission Date: 20150326
  Serious: Yes (Death, Other)
  Sender: FDA-Public Use
  Company Number: US-GILEAD-2014-0111383

PATIENT
  Age: 55 Year
  Sex: Male

DRUGS (16)
  1. NADOLOL. [Concomitant]
     Active Substance: NADOLOL
  2. MIRTAZAPINE. [Concomitant]
     Active Substance: MIRTAZAPINE
  3. XARELTO [Concomitant]
     Active Substance: RIVAROXABAN
  4. FUROSEMIDE. [Concomitant]
     Active Substance: FUROSEMIDE
  5. WARFARIN [Concomitant]
     Active Substance: WARFARIN
  6. LETAIRIS [Suspect]
     Active Substance: AMBRISENTAN
     Indication: PULMONARY ARTERIAL HYPERTENSION
     Dosage: 10 MG, QD
     Route: 065
     Dates: start: 20120119, end: 20140722
  7. METOLAZONE. [Concomitant]
     Active Substance: METOLAZONE
  8. LACTULOSE. [Concomitant]
     Active Substance: LACTULOSE
  9. OXYCODONE [Concomitant]
     Active Substance: OXYCODONE
  10. LORAZEPAM. [Concomitant]
     Active Substance: LORAZEPAM
  11. ACYCLOVIR                          /00587301/ [Concomitant]
     Active Substance: ACYCLOVIR
  12. PANTOPRAZOLE [Concomitant]
     Active Substance: PANTOPRAZOLE SODIUM
  13. COMBIVIR [Concomitant]
     Active Substance: LAMIVUDINE\ZIDOVUDINE
  14. NASONEX [Concomitant]
     Active Substance: MOMETASONE FUROATE
  15. SPIRONOLACTONE. [Concomitant]
     Active Substance: SPIRONOLACTONE
  16. POTASSIUM [Concomitant]
     Active Substance: POTASSIUM

REACTIONS (1)
  - Death [Fatal]

NARRATIVE: CASE EVENT DATE: 20140722
